FAERS Safety Report 13530273 (Version 1)
Quarter: 2017Q2

REPORT INFORMATION
  Report Type: Spontaneous
  Country: US (occurrence: US)
  Receive Date: 20170509
  Receipt Date: 20170509
  Transmission Date: 20170830
  Serious: No
  Sender: FDA-Public Use
  Company Number: US-UCBSA-2016028085

PATIENT
  Age: 77 Year
  Sex: Male

DRUGS (2)
  1. ROPINIROLE. [Suspect]
     Active Substance: ROPINIROLE
     Indication: PRODUCT USED FOR UNKNOWN INDICATION
  2. NEUPRO [Suspect]
     Active Substance: ROTIGOTINE
     Indication: RESTLESS LEGS SYNDROME
     Dosage: 1 MG, ONCE DAILY (QD)/OVER 6 MONTHS AGO
     Route: 062

REACTIONS (5)
  - Application site urticaria [Not Recovered/Not Resolved]
  - Fall [Unknown]
  - Application site pruritus [Not Recovered/Not Resolved]
  - Intentional product misuse [Unknown]
  - Drug intolerance [Unknown]
